FAERS Safety Report 5003855-5 (Version None)
Quarter: 2006Q2

REPORT INFORMATION
  Report Type: 
  Country: None (occurrence: None)
  Receive Date: 20060515
  Receipt Date: 20060504
  Transmission Date: 20061013
  Serious: Yes (Hospitalization)
  Sender: FDA-Public Use
  Company Number: 2006059032

PATIENT
  Age: 4 Year
  Sex: Female

DRUGS (4)
  1. PSEUDOEPHEDRINE (PSEUDOEPHEDRINE) [Suspect]
     Indication: UPPER RESPIRATORY TRACT INFECTION
     Dosage: 15MG EVERY 5 HOURS, ORAL
     Route: 048
  2. VINCRISTINE [Concomitant]
  3. IFOSFAMIDE [Concomitant]
  4. DACTINOMYCIN [Concomitant]

REACTIONS (4)
  - CAROTID ARTERY STENOSIS [None]
  - CEREBRAL ARTERY OCCLUSION [None]
  - CEREBROVASCULAR ACCIDENT [None]
  - HAEMORRHAGIC CEREBRAL INFARCTION [None]
